FAERS Safety Report 23655378 (Version 1)
Quarter: 2024Q1

REPORT INFORMATION
  Report Type: Spontaneous
  Country: RS (occurrence: RS)
  Receive Date: 20240320
  Receipt Date: 20240320
  Transmission Date: 20240410
  Serious: Yes (Other)
  Sender: FDA-Public Use
  Company Number: RS-BAYER-2024A040076

PATIENT

DRUGS (4)
  1. XARELTO [Suspect]
     Active Substance: RIVAROXABAN
     Indication: Atrial fibrillation
     Dosage: 15 MG
     Route: 048
  2. IBRANCE [Concomitant]
     Active Substance: PALBOCICLIB
     Dosage: 150 MG
     Route: 048
  3. FEMOZOL [Concomitant]
     Dosage: 1 DF
  4. AMIODARONE [Concomitant]
     Active Substance: AMIODARONE

REACTIONS (2)
  - Neoplasm malignant [Unknown]
  - Pleural effusion [Unknown]
